FAERS Safety Report 4656919-X (Version None)
Quarter: 2005Q2

REPORT INFORMATION
  Report Type: 
  Country: None (occurrence: None)
  Receive Date: 20050505
  Receipt Date: 20050420
  Transmission Date: 20051028
  Serious: Yes (Other)
  Sender: FDA-Public Use
  Company Number: ENTC2005-0112

PATIENT
  Age: 75 Year
  Sex: Male

DRUGS (3)
  1. STALEVO 100 [Suspect]
     Indication: PARKINSON'S DISEASE
     Dosage: 100 MG/25 MG/200 MG, ORAL
     Route: 048
  2. ENALAPRIL MALEATE [Suspect]
     Indication: HYPERTENSION
  3. HYDROCHLOROTHIAZIDE [Concomitant]

REACTIONS (6)
  - AORTIC VALVE INCOMPETENCE [None]
  - BRADYCARDIA [None]
  - CEREBRAL ISCHAEMIA [None]
  - DEMYELINATION [None]
  - SYNCOPE [None]
  - VENTRICULAR DYSFUNCTION [None]
